FAERS Safety Report 6837383-9 (Version None)
Quarter: 2010Q3

REPORT INFORMATION
  Report Type: 
  Country: None (occurrence: None)
  Receive Date: 20100713
  Receipt Date: 20070511
  Transmission Date: 20110219
  Serious: No
  Sender: FDA-Public Use
  Company Number: US-PFIZER INC-2007038284

PATIENT
  Sex: Female

DRUGS (5)
  1. CHANTIX [Suspect]
     Indication: SMOKING CESSATION THERAPY
     Dates: start: 20070510
  2. ZYRTEC [Concomitant]
  3. NYSTATIN [Concomitant]
     Indication: CANDIDIASIS
  4. WELLBUTRIN [Concomitant]
     Indication: SMOKING CESSATION THERAPY
  5. DIFLUCAN [Concomitant]
     Indication: CANDIDIASIS

REACTIONS (1)
  - HEADACHE [None]
